FAERS Safety Report 10345175 (Version 1)
Quarter: 2014Q3

REPORT INFORMATION
  Report Type: Spontaneous
  Country: AU (occurrence: AU)
  Receive Date: 20140728
  Receipt Date: 20140728
  Transmission Date: 20150326
  Serious: Yes (Life-Threatening)
  Sender: FDA-Public Use
  Company Number: AU-ASTRAZENECA-2014SE53548

PATIENT
  Age: 34768 Day

DRUGS (7)
  1. ROCURONIUM BROMIDE. [Suspect]
     Active Substance: ROCURONIUM BROMIDE
     Dosage: 50
     Route: 065
     Dates: start: 20140517
  2. PROPOFOL. [Suspect]
     Active Substance: PROPOFOL
     Dosage: 100
     Route: 042
     Dates: start: 20140517
  3. FENTANYL. [Suspect]
     Active Substance: FENTANYL
     Dosage: 50
     Route: 065
     Dates: start: 20140517
  4. SUXAMETHONIUM NOS [Suspect]
     Active Substance: SUCCINYLCHOLINE
     Dosage: 100
     Route: 065
     Dates: start: 20140517
  5. PERINDOPRIL [Concomitant]
     Active Substance: PERINDOPRIL
  6. INDAPAMIDE HEMIHYDRATE [Concomitant]
  7. MOCLOBEMIDE [Concomitant]
     Active Substance: MOCLOBEMIDE

REACTIONS (2)
  - Flushing [Recovered/Resolved]
  - Hypotension [Recovered/Resolved]

NARRATIVE: CASE EVENT DATE: 20140517
